FAERS Safety Report 19509082 (Version 2)
Quarter: 2021Q3

REPORT INFORMATION
  Report Type: Spontaneous
  Country: US (occurrence: US)
  Receive Date: 20210709
  Receipt Date: 20210831
  Transmission Date: 20211014
  Serious: No
  Sender: FDA-Public Use
  Company Number: US-JNJFOC-20210704129

PATIENT
  Sex: Female

DRUGS (8)
  1. ELMIRON [Suspect]
     Active Substance: PENTOSAN POLYSULFATE SODIUM
     Indication: CYSTITIS INTERSTITIAL
     Route: 048
     Dates: start: 2005, end: 2020
  2. RITALIN [Concomitant]
     Active Substance: METHYLPHENIDATE HYDROCHLORIDE
     Indication: ATTENTION DEFICIT HYPERACTIVITY DISORDER
     Route: 065
     Dates: start: 2015
  3. ESTRADIOL. [Concomitant]
     Active Substance: ESTRADIOL
     Route: 065
     Dates: start: 2015
  4. ELMIRON [Suspect]
     Active Substance: PENTOSAN POLYSULFATE SODIUM
     Route: 048
     Dates: start: 202105
  5. WELLBUTRIN [Concomitant]
     Active Substance: BUPROPION HYDROCHLORIDE
     Indication: DEPRESSION
     Route: 065
     Dates: start: 201001
  6. GABAPENTIN. [Concomitant]
     Active Substance: GABAPENTIN
     Indication: NEURALGIA
     Route: 065
  7. ALOE VERA [Concomitant]
     Active Substance: ALOE VERA LEAF
     Indication: CYSTITIS INTERSTITIAL
     Route: 065
     Dates: start: 2015
  8. TROSPIUM [Concomitant]
     Active Substance: TROSPIUM
     Indication: HYPERTONIC BLADDER
     Route: 065
     Dates: start: 2015

REACTIONS (3)
  - Vision blurred [Unknown]
  - Delayed dark adaptation [Unknown]
  - Visual impairment [Unknown]

NARRATIVE: CASE EVENT DATE: 2014
